FAERS Safety Report 12084196 (Version 1)
Quarter: 2016Q1

REPORT INFORMATION
  Report Type: Spontaneous
  Country: JP (occurrence: JP)
  Receive Date: 20160217
  Receipt Date: 20160217
  Transmission Date: 20160526
  Serious: Yes (Disabling)
  Sender: FDA-Public Use
  Company Number: JP-009507513-1602JPN006503

PATIENT
  Age: 66 Year
  Sex: Male
  Weight: 62.2 kg

DRUGS (9)
  1. CANCIDAS [Suspect]
     Active Substance: CASPOFUNGIN ACETATE
     Indication: PNEUMONIA
     Dosage: 50 MG, QD
     Route: 041
     Dates: start: 20150113, end: 20150115
  2. SULBACILLIN [Suspect]
     Active Substance: AMPICILLIN SODIUM\SULBACTAM SODIUM
     Indication: PNEUMONIA
     Dosage: 1.5 G, QID
     Route: 051
     Dates: start: 20150105, end: 20150112
  3. MINOCYCLINE HYDROCHLORIDE. [Suspect]
     Active Substance: MINOCYCLINE HYDROCHLORIDE
     Indication: PNEUMONIA
     Dosage: 100 MG, QD
     Route: 051
     Dates: start: 20150105, end: 20150115
  4. DORMICUM (MIDAZOLAM) [Suspect]
     Active Substance: MIDAZOLAM HYDROCHLORIDE
     Indication: SEDATION
     Dosage: 50 MG, QD
     Route: 051
     Dates: start: 20150104, end: 20150115
  5. ZOSYN [Suspect]
     Active Substance: PIPERACILLIN SODIUM\TAZOBACTAM SODIUM
     Indication: PNEUMONIA
     Dosage: MG
     Route: 051
     Dates: start: 20150115, end: 20150115
  6. PRECEDEX [Suspect]
     Active Substance: DEXMEDETOMIDINE HYDROCHLORIDE
     Indication: SEDATION
     Dosage: 200 MICROGRAM, QD
     Route: 051
     Dates: start: 20150104, end: 20150115
  7. INOVAN (DOPAMINE HYDROCHLORIDE) [Suspect]
     Active Substance: DOPAMINE HYDROCHLORIDE
     Indication: BLOOD PRESSURE MANAGEMENT
     Dosage: 50 ML, QD
     Route: 051
     Dates: start: 20150104, end: 20150115
  8. CANCIDAS [Suspect]
     Active Substance: CASPOFUNGIN ACETATE
     Indication: PNEUMONIA
     Dosage: 70 MG, QD
     Route: 041
     Dates: start: 20150112, end: 20150112
  9. AMIPAREN [Suspect]
     Active Substance: AMINO ACIDS
     Indication: NUTRITIONAL SUPPLEMENTATION
     Dosage: 200 ML, QD
     Route: 051
     Dates: start: 20150110, end: 20150115

REACTIONS (5)
  - Blood alkaline phosphatase increased [None]
  - Drug-induced liver injury [Recovering/Resolving]
  - Aspartate aminotransferase increased [None]
  - Blood lactate dehydrogenase increased [None]
  - Alanine aminotransferase increased [None]

NARRATIVE: CASE EVENT DATE: 20150115
